FAERS Safety Report 6329156-0 (Version None)
Quarter: 2009Q3

REPORT INFORMATION
  Report Type: 
  Country: None (occurrence: None)
  Receive Date: 20090826
  Receipt Date: 20090818
  Transmission Date: 20100115
  Serious: Yes (Death, Other)
  Sender: FDA-Public Use
  Company Number: US-ROCHE-651437

PATIENT
  Age: 61 Year
  Sex: Female

DRUGS (11)
  1. XELODA [Suspect]
     Route: 065
  2. OXANDRIN [Concomitant]
     Dosage: DRUG: OXANDREN
  3. RESVERATROL [Concomitant]
  4. COUMADIN [Concomitant]
  5. VERAPAMIL [Concomitant]
  6. PREMARIN [Concomitant]
  7. THALIDOMIDE [Concomitant]
     Dosage: DRUG: THALIDAMIDE
  8. CURCUMIN [Concomitant]
  9. ASCORBIC ACID [Concomitant]
  10. TARCEVA [Concomitant]
  11. VIACIN [Concomitant]

REACTIONS (5)
  - CHEST PAIN [None]
  - FLATULENCE [None]
  - ILL-DEFINED DISORDER [None]
  - MYOCARDIAL INFARCTION [None]
  - PAIN IN EXTREMITY [None]
